FAERS Safety Report 15690423 (Version 2)
Quarter: 2018Q4

REPORT INFORMATION
  Report Type: Spontaneous
  Country: US (occurrence: US)
  Receive Date: 20181205
  Receipt Date: 20181211
  Transmission Date: 20190205
  Serious: No
  Sender: FDA-Public Use
  Company Number: US-PFIZER INC-2018500083

PATIENT
  Age: 52 Year
  Sex: Female

DRUGS (1)
  1. GENOTROPIN [Suspect]
     Active Substance: SOMATROPIN
     Indication: BLOOD GROWTH HORMONE
     Dosage: 0.3 MG, DAILY
     Dates: start: 201712

REACTIONS (4)
  - Peripheral swelling [Unknown]
  - Blood potassium decreased [Unknown]
  - Flat affect [Unknown]
  - Product dose omission [Unknown]

NARRATIVE: CASE EVENT DATE: 20180626
